FAERS Safety Report 5330205-7 (Version None)
Quarter: 2007Q2

REPORT INFORMATION
  Report Type: 
  Country: None (occurrence: None)
  Receive Date: 20070521
  Receipt Date: 20070508
  Transmission Date: 20071010
  Serious: No
  Sender: FDA-Public Use
  Company Number: US-ELI_LILLY_AND_COMPANY-US200703003621

PATIENT
  Age: 42 Year
  Sex: Female

DRUGS (9)
  1. COLACE [Concomitant]
  2. CYMBALTA [Suspect]
     Indication: DEPRESSION
     Dosage: 60 MG, DAILY (1/D)
     Route: 048
     Dates: start: 20060501
  3. ENALAPRIL [Concomitant]
     Indication: MIGRAINE
     Dosage: 10 MG, EACH MORNING
  4. TRILEPTAL [Concomitant]
     Dosage: 300 MG, EACH MORNING
  5. TRILEPTAL [Concomitant]
     Dosage: 600 MG, EACH EVENING
  6. SYNTHROID [Concomitant]
  7. PREVACID [Concomitant]
  8. VITAMIN B-12 [Concomitant]
     Dosage: UNK, WEEKLY (1/W)
     Route: 030
  9. SEROQUEL [Concomitant]

REACTIONS (1)
  - HEPATIC ENZYME INCREASED [None]
